FAERS Safety Report 23693315 (Version 1)
Quarter: 2024Q2

REPORT INFORMATION
  Report Type: Report from Study
  Country: US (occurrence: US)
  Receive Date: 20240401
  Receipt Date: 20240401
  Transmission Date: 20240715
  Serious: Yes (Hospitalization, Other)
  Sender: FDA-Public Use
  Company Number: US-GILEAD-2024-0667174

PATIENT
  Sex: Female

DRUGS (3)
  1. AMBRISENTAN [Suspect]
     Active Substance: AMBRISENTAN
     Indication: Pulmonary hypertension
     Dosage: 10 MG, QD
     Route: 065
     Dates: start: 20230828
  2. ADEMPAS [Concomitant]
     Active Substance: RIOCIGUAT
  3. ELIQUIS [Concomitant]
     Active Substance: APIXABAN

REACTIONS (1)
  - Angioplasty [Recovered/Resolved]
